FAERS Safety Report 17505699 (Version 1)
Quarter: 2020Q1

REPORT INFORMATION
  Report Type: Spontaneous
  Country: US (occurrence: US)
  Receive Date: 20200305
  Receipt Date: 20200305
  Transmission Date: 20200409
  Serious: Yes (Hospitalization)
  Sender: FDA-Public Use
  Company Number: US-TEVA-2020-US-1193457

PATIENT
  Age: 31 Year
  Sex: Female

DRUGS (1)
  1. EPOPROSTENOL. [Suspect]
     Active Substance: EPOPROSTENOL
     Indication: PULMONARY ARTERIAL HYPERTENSION
     Dosage: INITIAL DOSE WAS 2 NG/KG/MIN WITH INCREASING DOSE BY INCREMENTS OF 1-2NG/KG/MIN EVERY FIFTEEN MIN...
     Route: 042

REACTIONS (3)
  - Maternal exposure during pregnancy [Unknown]
  - Premature delivery [Unknown]
  - Lethargy [Not Recovered/Not Resolved]
